FAERS Safety Report 15431280 (Version 2)
Quarter: 2018Q4

REPORT INFORMATION
  Report Type: Spontaneous
  Country: US (occurrence: US)
  Receive Date: 20180926
  Receipt Date: 20181008
  Transmission Date: 20190204
  Serious: No
  Sender: FDA-Public Use
  Company Number: US-SUNOVION-2018SUN003625

PATIENT
  Age: 48 Year
  Sex: Female
  Weight: 105.67 kg

DRUGS (4)
  1. REGLAN [Concomitant]
     Active Substance: METOCLOPRAMIDE HYDROCHLORIDE
     Indication: GASTROOESOPHAGEAL REFLUX DISEASE
     Dosage: 10 MG, QID
     Route: 048
     Dates: start: 2009, end: 20180907
  2. LATUDA [Suspect]
     Active Substance: LURASIDONE HYDROCHLORIDE
     Indication: DEPRESSION
     Dosage: 40 MG (1 TAB) QD
     Route: 048
     Dates: start: 20180913
  3. LATUDA [Suspect]
     Active Substance: LURASIDONE HYDROCHLORIDE
     Indication: ANXIETY
     Dosage: UNK
     Route: 048
  4. LATUDA [Suspect]
     Active Substance: LURASIDONE HYDROCHLORIDE
     Indication: ANGER
     Dosage: 20 MG (HALF 40 MG TAB) QD
     Route: 048
     Dates: start: 20180907, end: 20180912

REACTIONS (8)
  - Feeding disorder [Recovered/Resolved]
  - Crying [Recovered/Resolved]
  - Discomfort [Recovered/Resolved]
  - Abdominal pain upper [Recovered/Resolved]
  - Nausea [Recovered/Resolved]
  - Off label use [Unknown]
  - Gastrooesophageal reflux disease [Recovered/Resolved]
  - Dysstasia [Recovered/Resolved]

NARRATIVE: CASE EVENT DATE: 201809
